FAERS Safety Report 7816226-0 (Version None)
Quarter: 2011Q4

REPORT INFORMATION
  Report Type: 
  Country: None (occurrence: None)
  Receive Date: 20111016
  Receipt Date: 20110916
  Transmission Date: 20120403
  Serious: Yes (Other)
  Sender: FDA-Public Use
  Company Number: PHHY2011JP78747

PATIENT
  Sex: Female

DRUGS (5)
  1. DICLOFENAC SODIUM [Suspect]
     Indication: ARTHRALGIA
     Dosage: 75 MG, DAILY
  2. PREDNISOLONE [Concomitant]
     Indication: ARTHRALGIA
     Dosage: 15 MG, PER DAY
     Route: 048
  3. METHOTREXATE [Concomitant]
     Indication: ARTHRALGIA
     Dosage: 4 MG, PER DAY
     Route: 048
  4. RABEPRAZOLE SODIUM [Concomitant]
     Indication: ARTHRALGIA
     Dosage: 10 MG, PER DAY
     Route: 048
  5. TEPRENONE [Concomitant]
     Indication: ARTHRALGIA
     Dosage: 150 MG, PER DAY
     Route: 048

REACTIONS (11)
  - SMALL INTESTINAL STENOSIS [None]
  - JOINT SWELLING [None]
  - SMALL INTESTINE ULCER [None]
  - ERYTHEMA [None]
  - GASTROINTESTINAL INJURY [None]
  - ANAEMIA [None]
  - GASTROINTESTINAL HAEMORRHAGE [None]
  - ABDOMINAL PAIN [None]
  - ABDOMINAL TENDERNESS [None]
  - HYPOALBUMINAEMIA [None]
  - GASTROINTESTINAL EROSION [None]
